FAERS Safety Report 4602704-4 (Version None)
Quarter: 2005Q1

REPORT INFORMATION
  Report Type: 
  Country: None (occurrence: None)
  Receive Date: 20050307
  Receipt Date: 20050223
  Transmission Date: 20050727
  Serious: Yes (Other)
  Sender: FDA-Public Use
  Company Number: S05-USA-01015-01

PATIENT
  Age: 36 Year
  Sex: Female

DRUGS (7)
  1. LEXAPRO [Suspect]
     Indication: DEPRESSION
     Dosage: 10 MG QD PO
     Route: 048
     Dates: start: 20030101, end: 20050122
  2. LEXAPRO [Suspect]
     Indication: DEPRESSION
     Dosage: 5 MG QD PO
     Route: 048
     Dates: start: 20050123, end: 20050129
  3. LEXAPRO [Suspect]
     Indication: DEPRESSION
     Dosage: 10 MG QD PO
     Route: 048
     Dates: start: 20050201, end: 20050208
  4. LEXAPRO [Suspect]
     Indication: DEPRESSION
     Dosage: 5 MG QD PO
     Route: 048
     Dates: start: 20050209, end: 20050215
  5. LEXAPRO [Suspect]
     Indication: DEPRESSION
     Dosage: 2.5 MG QD PO
     Route: 048
     Dates: start: 20050216, end: 20050219
  6. LAMICTAL [Concomitant]
  7. KEPPRA [Concomitant]

REACTIONS (4)
  - COMPLEX PARTIAL SEIZURES [None]
  - CONDITION AGGRAVATED [None]
  - NIGHT SWEATS [None]
  - SIMPLE PARTIAL SEIZURES [None]
